FAERS Safety Report 9517285 (Version 1)
Quarter: 2013Q3

REPORT INFORMATION
  Report Type: Spontaneous
  Country: US (occurrence: US)
  Receive Date: 20130911
  Receipt Date: 20130911
  Transmission Date: 20140515
  Serious: No
  Sender: FDA-Public Use
  Company Number: US-009507513-1309USA004089

PATIENT
  Sex: Female

DRUGS (5)
  1. CLARITIN [Suspect]
     Indication: HYPERSENSITIVITY
     Dosage: PRN
     Route: 048
  2. VERAPAMIL [Concomitant]
     Indication: HYPERTENSION
     Dosage: UNK, UNKNOWN
  3. DIOVAN [Concomitant]
     Indication: HYPERTENSION
     Dosage: UNK, UNKNOWN
  4. LEVOTHYROXINE SODIUM [Concomitant]
     Indication: THYROID DISORDER
     Dosage: UNK, UNKNOWN
  5. LUMIGAN [Concomitant]
     Indication: GLAUCOMA
     Dosage: UNK, UNKNOWN

REACTIONS (1)
  - Eye disorder [Recovering/Resolving]
